FAERS Safety Report 19733350 (Version 3)
Quarter: 2021Q3

REPORT INFORMATION
  Report Type: Spontaneous
  Country: FR (occurrence: FR)
  Receive Date: 20210823
  Receipt Date: 20210906
  Transmission Date: 20211014
  Serious: Yes (Other)
  Sender: FDA-Public Use
  Company Number: FR-AUROBINDO-AUR-APL-2021-035238

PATIENT
  Age: 49 Year
  Sex: Female

DRUGS (4)
  1. EPIRUBICIN [Suspect]
     Active Substance: EPIRUBICIN
     Indication: LOBULAR BREAST CARCINOMA IN SITU
     Dosage: UNK
     Route: 065
  2. CYCLOPHOSPHAMIDE. [Concomitant]
     Active Substance: CYCLOPHOSPHAMIDE
     Indication: LOBULAR BREAST CARCINOMA IN SITU
     Dosage: UNK
     Route: 065
  3. TAMOXIFEN [Suspect]
     Active Substance: TAMOXIFEN
     Indication: INVASIVE LOBULAR BREAST CARCINOMA
     Dosage: 1.2 GRAM, TOTAL (20 MG PER DAY)
     Route: 065
  4. PACLITAXEL. [Suspect]
     Active Substance: PACLITAXEL
     Indication: LOBULAR BREAST CARCINOMA IN SITU
     Dosage: UNK
     Route: 065

REACTIONS (2)
  - Uveitis [Recovering/Resolving]
  - Retinopathy [Recovering/Resolving]
